FAERS Safety Report 15765084 (Version 2)
Quarter: 2019Q1

REPORT INFORMATION
  Report Type: Spontaneous
  Country: US (occurrence: US)
  Receive Date: 20181227
  Receipt Date: 20190102
  Transmission Date: 20190417
  Serious: Yes (Life-Threatening, Hospitalization)
  Sender: FDA-Public Use
  Company Number: US-GBPHLPEH-2018-PEL-003477

PATIENT

DRUGS (3)
  1. GABLOFEN [Suspect]
     Active Substance: BACLOFEN
     Dosage: 266.7/HR
     Route: 037
     Dates: start: 20180605
  2. GABLOFEN [Suspect]
     Active Substance: BACLOFEN
     Dosage: 900 ?G, QD
     Route: 037
  3. GABLOFEN [Suspect]
     Active Substance: BACLOFEN
     Dosage: 300 ?G, QD
     Route: 037

REACTIONS (5)
  - Device damage [Recovered/Resolved]
  - Muscle spasticity [Unknown]
  - Insomnia [Unknown]
  - Product dispensing error [Unknown]
  - Overdose [Unknown]

NARRATIVE: CASE EVENT DATE: 20180605
